FAERS Safety Report 8560429-7 (Version None)
Quarter: 2012Q3

REPORT INFORMATION
  Report Type: 
  Country: None (occurrence: None)
  Receive Date: 20120802
  Receipt Date: 20120717
  Transmission Date: 20120928
  Serious: No
  Sender: FDA-Public Use
  Company Number: US-ASTRAZENECA-2012SE43118

PATIENT
  Age: 68 Year
  Sex: Female

DRUGS (2)
  1. SYMBICORT [Suspect]
     Route: 055
  2. OXYGEN [Concomitant]

REACTIONS (4)
  - OXYGEN CONSUMPTION DECREASED [None]
  - ADVERSE EVENT [None]
  - OROPHARYNGEAL PAIN [None]
  - DYSPNOEA [None]
